FAERS Safety Report 8990424 (Version 1)
Quarter: 2012Q4

REPORT INFORMATION
  Report Type: 
  Country: US (occurrence: US)
  Receive Date: 20121228
  Receipt Date: 20121228
  Transmission Date: 20130627
  Serious: No
  Sender: FDA-Public Use
  Company Number: US-ASTRAZENECA-2005UW18461

PATIENT
  Age: 62 Year
  Sex: Male

DRUGS (3)
  1. ATACAND [Suspect]
     Route: 048
  2. CRESTOR [Suspect]
     Route: 048
  3. LIPITOR [Suspect]
     Route: 065

REACTIONS (3)
  - Haematochezia [Unknown]
  - Constipation [Unknown]
  - Abdominal discomfort [Unknown]
